FAERS Safety Report 5145148-1 (Version None)
Quarter: 2006Q4

REPORT INFORMATION
  Report Type: 
  Country: None (occurrence: None)
  Receive Date: 20061107
  Receipt Date: 20060830
  Transmission Date: 20070319
  Serious: Yes (Death, Hospitalization)
  Sender: FDA-Public Use
  Company Number: FR-ELI_LILLY_AND_COMPANY-FR200609000011

PATIENT
  Age: 80 Year
  Sex: Female

DRUGS (7)
  1. FORTEO [Suspect]
     Indication: OSTEOPOROSIS
     Dosage: 20 UG, DAILY (1/D)
     Route: 058
     Dates: start: 20060306
  2. OROCAL [Concomitant]
     Indication: OSTEOPOROSIS
     Dosage: 1 D/F, DAILY (1/D)
  3. ARAVA [Concomitant]
     Indication: RHEUMATOID ARTHRITIS
  4. NOVOMIX [Concomitant]
     Indication: DIABETES MELLITUS INSULIN-DEPENDENT
     Dosage: UNK, UNK
  5. CORTANCYL                               /FRA/ [Concomitant]
     Indication: RHEUMATOID ARTHRITIS
  6. KETOPROFEN [Concomitant]
  7. INIPOMP [Concomitant]
     Indication: ULCER

REACTIONS (6)
  - ANEURYSM RUPTURED [None]
  - DEATH [None]
  - FALL [None]
  - FEMORAL NECK FRACTURE [None]
  - HYPERTENSION [None]
  - SUDDEN DEATH [None]
